FAERS Safety Report 22073770 (Version 1)
Quarter: 2023Q1

REPORT INFORMATION
  Report Type: Spontaneous
  Country: ES (occurrence: ES)
  Receive Date: 20230308
  Receipt Date: 20230308
  Transmission Date: 20230417
  Serious: Yes (Hospitalization)
  Sender: FDA-Public Use
  Company Number: None

PATIENT
  Age: 76 Year
  Sex: Male

DRUGS (8)
  1. FUROSEMIDE [Suspect]
     Active Substance: FUROSEMIDE
     Indication: Cardiac failure
     Dosage: 40 MILLIGRAM, QD (EVERY 24 HOURS)
     Route: 048
     Dates: start: 20211228, end: 20220928
  2. SINTROM [Concomitant]
     Active Substance: ACENOCOUMAROL
     Indication: Atrial fibrillation
     Dosage: 4 MILLIGRAM, QD (DINNER)
     Route: 048
     Dates: start: 20211201
  3. ALLOPURINOL [Concomitant]
     Active Substance: ALLOPURINOL
     Indication: Gout
     Dosage: 300 MILLIGRAM, QD (BREAKFAST)
     Route: 048
     Dates: start: 20200520
  4. OMEPRAZOLE [Concomitant]
     Active Substance: OMEPRAZOLE
     Indication: Arrhythmia
     Dosage: 20 MILLIGRAM, QD (BEFORE BREAKFAST)
     Route: 048
     Dates: start: 20210206
  5. Serc [Concomitant]
     Indication: Musculoskeletal disorder
     Dosage: 8 MILLIGRAM, TID (BREAKFAST,LUNCH, DINNER)
     Route: 048
     Dates: start: 20220518
  6. ATORVASTATINA STADAGEN [Concomitant]
     Indication: Hyperlipidaemia
     Dosage: 10 MILLIGRAM, QD (DINNER)
     Route: 048
     Dates: start: 20110919
  7. SOLIFENACIN\TAMSULOSIN [Concomitant]
     Active Substance: SOLIFENACIN\TAMSULOSIN
     Indication: Benign prostatic hyperplasia
     Dosage: 1 DOSAGE FORM, QD (DINNER)
     Route: 048
     Dates: start: 20220909
  8. LINAGLIPTIN [Concomitant]
     Active Substance: LINAGLIPTIN
     Indication: Atrial fibrillation
     Dosage: 5 MILLIGRAM, QD (LUNCH)
     Route: 048
     Dates: start: 20220720

REACTIONS (1)
  - Acute kidney injury [Recovered/Resolved]

NARRATIVE: CASE EVENT DATE: 20220928
